FAERS Safety Report 19552983 (Version 1)
Quarter: 2021Q3

REPORT INFORMATION
  Report Type: Spontaneous
  Country: GB (occurrence: GB)
  Receive Date: 20210715
  Receipt Date: 20210715
  Transmission Date: 20211014
  Serious: Yes (Life-Threatening, Hospitalization, Disabling)
  Sender: FDA-Public Use
  Company Number: GB-DRREDDYS-SPO/UKI/21/0137718

PATIENT
  Age: 54 Year
  Sex: Male
  Weight: 90.71 kg

DRUGS (10)
  1. FEXOFENADINE [Suspect]
     Active Substance: FEXOFENADINE HYDROCHLORIDE
     Indication: PRODUCT USED FOR UNKNOWN INDICATION
     Dates: start: 20180530, end: 20180610
  2. SERTRALINE [Concomitant]
     Active Substance: SERTRALINE HYDROCHLORIDE
     Indication: PRODUCT USED FOR UNKNOWN INDICATION
     Dosage: 1 EVERY MORNING IN ADDITION TO 100MG TABLET
     Dates: start: 20180611
  3. PRIADEL [Concomitant]
     Active Substance: LITHIUM
     Dosage: THREE  EVERY NIGHT NOTES FOR PATIENT:
     Dates: start: 20180611
  4. AZATHIOPRINE. [Concomitant]
     Active Substance: AZATHIOPRINE
     Indication: PRODUCT USED FOR UNKNOWN INDICATION
     Dates: start: 20180416
  5. BETNOVATE [Concomitant]
     Active Substance: BETAMETHASONE
     Indication: PRODUCT USED FOR UNKNOWN INDICATION
     Dosage: APPLY A THIN LAYER DAILY FOR UP TO 7 DAYS
     Dates: start: 20180524
  6. BETNOVATE [Concomitant]
     Active Substance: BETAMETHASONE
     Dosage: AS REQ
     Dates: start: 20180503
  7. PRIADEL [Concomitant]
     Active Substance: LITHIUM
     Indication: PRODUCT USED FOR UNKNOWN INDICATION
     Dosage: THREE EVERY NIGHT
     Dates: start: 20180416
  8. SERTRALINE [Concomitant]
     Active Substance: SERTRALINE HYDROCHLORIDE
     Dosage: 1 TABLET ONCE A DAY
     Dates: start: 20180611
  9. UREA. [Concomitant]
     Active Substance: UREA
     Indication: PRODUCT USED FOR UNKNOWN INDICATION
     Dosage: USE WHEN REQUIRED FOR DRY ITCHY SKIN
     Dates: start: 20180530
  10. AZATHIOPRINE. [Concomitant]
     Active Substance: AZATHIOPRINE
     Dates: start: 20180611

REACTIONS (1)
  - Epiglottic oedema [Recovering/Resolving]

NARRATIVE: CASE EVENT DATE: 20180601
